FAERS Safety Report 8610829-1 (Version None)
Quarter: 2012Q3

REPORT INFORMATION
  Report Type: 
  Country: None (occurrence: None)
  Receive Date: 20120822
  Receipt Date: 20120813
  Transmission Date: 20120928
  Serious: Yes (Other)
  Sender: FDA-Public Use
  Company Number: US-JNJFOC-20120706538

PATIENT
  Age: 69 Year
  Sex: Male
  Weight: 68.03 kg

DRUGS (2)
  1. NICOTINE [Suspect]
     Indication: PRODUCT USED FOR UNKNOWN INDICATION
     Route: 065
  2. NICOTINE [Suspect]
     Route: 065

REACTIONS (3)
  - DRUG HYPERSENSITIVITY [None]
  - PARTIAL SEIZURES [None]
  - CONVULSION [None]
